FAERS Safety Report 20720966 (Version 3)
Quarter: 2022Q3

REPORT INFORMATION
  Report Type: Spontaneous
  Country: US (occurrence: US)
  Receive Date: 20220418
  Receipt Date: 20220810
  Transmission Date: 20221027
  Serious: Yes (Other)
  Sender: FDA-Public Use
  Company Number: US-MLMSERVICE-20220331-3469618-1

PATIENT
  Age: 49 Year
  Sex: Female

DRUGS (15)
  1. METHOTREXATE SODIUM [Suspect]
     Active Substance: METHOTREXATE SODIUM
     Indication: Necrotising retinitis
     Dosage: 3 CYCLES OF INTRAVITREOUS METHOTREXATE 400 UG WITH ALTERNATING WEEKLY
     Route: 031
  2. MYCOPHENOLATE MOFETIL [Concomitant]
     Active Substance: MYCOPHENOLATE MOFETIL
     Indication: Immunosuppressant drug therapy
     Dosage: 360 MG, 2X/DAY
  3. MYCOPHENOLATE MOFETIL [Concomitant]
     Active Substance: MYCOPHENOLATE MOFETIL
     Dosage: 180 MG, 2X/DAY
  4. PREDNISONE [Concomitant]
     Active Substance: PREDNISONE
     Indication: Immunosuppressant drug therapy
     Dosage: 5 MG, 1X/DAY
     Route: 048
  5. HYDRALAZINE [Concomitant]
     Active Substance: HYDRALAZINE HYDROCHLORIDE
     Indication: Hypertension
     Dosage: UNK
  6. CARVEDILOL [Concomitant]
     Active Substance: CARVEDILOL
     Indication: Hypertension
     Dosage: UNK
  7. LEVOTHYROXINE [Concomitant]
     Active Substance: LEVOTHYROXINE
     Indication: Thyroid disorder
     Dosage: UNK
  8. TOPIRAMATE [Concomitant]
     Active Substance: TOPIRAMATE
     Indication: Idiopathic intracranial hypertension
     Dosage: UNK
  9. GANCICLOVIR [Concomitant]
     Active Substance: GANCICLOVIR
     Indication: Necrotising retinitis
     Dosage: 450 MG, ALTERNATE DAY (48 HOURS)
     Route: 048
  10. GANCICLOVIR [Concomitant]
     Active Substance: GANCICLOVIR
     Indication: Necrotising retinitis
     Dosage: 4 DF, WEEKLY
     Route: 031
  11. FOSCARNET [Concomitant]
     Active Substance: FOSCARNET
     Indication: Necrotising retinitis
     Dosage: 4 DF, WEEKLY
     Route: 031
  12. CLINDAMYCIN [Concomitant]
     Active Substance: CLINDAMYCIN
     Indication: Necrotising retinitis
     Dosage: 1 MG
     Route: 031
  13. PENICILLIN [Concomitant]
     Active Substance: PENICILLIN
     Dosage: 300 IU
     Route: 031
  14. DEXAMETHASONE [Concomitant]
     Active Substance: DEXAMETHASONE
     Indication: Necrotising retinitis
     Dosage: UNK
     Route: 031
  15. PREDNISOLONE ACETATE [Concomitant]
     Active Substance: PREDNISOLONE ACETATE
     Indication: Necrotising retinitis
     Dosage: 1 DF, 4X/DAY (6 HOURS)
     Route: 047

REACTIONS (6)
  - Hyphaema [Recovered/Resolved]
  - Vitreous haemorrhage [Recovered/Resolved]
  - Corneal disorder [Recovered/Resolved]
  - Off label use [Unknown]
  - Off label use [Unknown]
  - Drug effective for unapproved indication [Unknown]
